FAERS Safety Report 7631392-8 (Version None)
Quarter: 2011Q3

REPORT INFORMATION
  Report Type: 
  Country: None (occurrence: None)
  Receive Date: 20110725
  Receipt Date: 20110714
  Transmission Date: 20111222
  Serious: Yes (Hospitalization)
  Sender: FDA-Public Use
  Company Number: GB-AMGEN-GBRCT2011035773

PATIENT
  Age: 69 Year
  Sex: Male

DRUGS (8)
  1. DIGOXIN [Concomitant]
     Dosage: 150 A?G, QD
     Dates: start: 20110301
  2. PANITUMUMAB [Suspect]
     Indication: GASTROOESOPHAGEAL CANCER
     Dosage: UNK
     Dates: start: 20110421
  3. TRANEXAMIC ACID [Concomitant]
     Dosage: 500 MG, UNK
     Dates: start: 20110301
  4. PROCHLORPERAZINE [Concomitant]
     Dosage: 10 A?G, UNK
     Dates: start: 20110608
  5. SOLPADOL [Concomitant]
     Dosage: UNK
     Dates: start: 20110608
  6. CAPECITABINE [Concomitant]
     Indication: GASTROOESOPHAGEAL CANCER
     Dosage: UNK
     Dates: start: 20110421
  7. OXALIPLATIN [Concomitant]
     Indication: GASTROOESOPHAGEAL CANCER
     Dosage: UNK
     Dates: start: 20110421
  8. EPIRUBICIN [Concomitant]
     Indication: GASTROOESOPHAGEAL CANCER
     Dosage: UNK
     Dates: start: 20110421

REACTIONS (1)
  - EXTRAVASATION [None]
